FAERS Safety Report 22115572 (Version 1)
Quarter: 2023Q1

REPORT INFORMATION
  Report Type: Spontaneous
  Country: FR (occurrence: FR)
  Receive Date: 20230320
  Receipt Date: 20230320
  Transmission Date: 20230417
  Serious: Yes (Other)
  Sender: FDA-Public Use
  Company Number: None

PATIENT
  Age: 64 Year
  Sex: Male
  Weight: 75 kg

DRUGS (2)
  1. ALFUZOSIN [Suspect]
     Active Substance: ALFUZOSIN
     Indication: Benign prostatic hyperplasia
     Dosage: 1 DOSAGE FORM, QD
     Route: 048
  2. FENOXAZOLINE HYDROCHLORIDE [Suspect]
     Active Substance: FENOXAZOLINE HYDROCHLORIDE
     Indication: Nasal congestion
     Dosage: 3 DOSAGE FORM, QD
     Route: 045
     Dates: start: 2020, end: 20230214

REACTIONS (3)
  - Metamorphopsia [Recovered/Resolved]
  - Aphasia [Recovered/Resolved]
  - Intentional product misuse [Recovered/Resolved]

NARRATIVE: CASE EVENT DATE: 20200101
